FAERS Safety Report 26135118 (Version 1)
Quarter: 2025Q4

REPORT INFORMATION
  Report Type: Spontaneous
  Country: PR (occurrence: None)
  Receive Date: 20251208
  Receipt Date: 20251208
  Transmission Date: 20260118
  Serious: Yes (Hospitalization)
  Sender: FDA-CTU
  Company Number: None

PATIENT
  Age: 83 Year
  Sex: Female

DRUGS (7)
  1. LENALIDOMIDE [Suspect]
     Active Substance: LENALIDOMIDE
     Indication: Plasma cell myeloma
     Dosage: 5 MG DAILY ORAL
     Route: 048
     Dates: start: 20210626
  2. IRON 325MG TABLETS [Concomitant]
  3. VITAMINS [Concomitant]
     Active Substance: VITAMINS
  4. IRON 325MG TABLETS [Concomitant]
  5. GABAPENTIN 600MG TABLETS [Concomitant]
  6. LEVOXYL 0.088MG (88MCG) TABLETS [Concomitant]
  7. VITAMIN D3 50,000 IU (CHOLE) TAB [Concomitant]

REACTIONS (4)
  - Pneumonia [None]
  - White blood cell count decreased [None]
  - Platelet count decreased [None]
  - Oedema peripheral [None]

NARRATIVE: CASE EVENT DATE: 20251117
